FAERS Safety Report 9380960 (Version 1)
Quarter: 2013Q3

REPORT INFORMATION
  Report Type: Report from Study
  Country: CA (occurrence: CA)
  Receive Date: 20130703
  Receipt Date: 20130703
  Transmission Date: 20140515
  Serious: Yes (Other)
  Sender: FDA-Public Use
  Company Number: CA-ROCHE-1242901

PATIENT
  Age: 66 Year
  Sex: Female

DRUGS (16)
  1. RITUXAN [Suspect]
     Indication: RHEUMATOID ARTHRITIS
     Dosage: FREQUENCY: DAY 1 AND DAY 15
     Route: 042
     Dates: start: 20110623, end: 20110707
  2. DIPHENHYDRAMINE HCL [Concomitant]
     Indication: PREMEDICATION
     Route: 048
     Dates: start: 20110623, end: 20110707
  3. ACETAMINOPHEN [Concomitant]
     Indication: PREMEDICATION
     Route: 048
     Dates: start: 20110623, end: 20110707
  4. METHYLPREDNISOLONE [Concomitant]
     Indication: PREMEDICATION
     Route: 042
     Dates: start: 20110623, end: 20110707
  5. ARTHROTEC [Concomitant]
  6. ARAVA [Concomitant]
  7. METHOTREXATE [Concomitant]
     Route: 065
  8. HUMULIN N [Concomitant]
  9. METFORMIN HYDROCHLORIDE [Concomitant]
     Route: 065
  10. LUVOX [Concomitant]
  11. CRESTOR [Concomitant]
  12. OMEPRAZOLE [Concomitant]
  13. TYLENOL #3 (CANADA) [Concomitant]
     Route: 065
  14. CORTISONE [Concomitant]
     Route: 065
  15. VITAMIN B6 [Concomitant]
  16. VITAMIN B12 [Concomitant]

REACTIONS (3)
  - Oedema [Unknown]
  - Neuropathy peripheral [Not Recovered/Not Resolved]
  - Spinal operation [Unknown]
